FAERS Safety Report 7962935-2 (Version None)
Quarter: 2011Q4

REPORT INFORMATION
  Report Type: 
  Country: None (occurrence: None)
  Receive Date: 20111207
  Receipt Date: 20111129
  Transmission Date: 20120403
  Serious: Yes (Hospitalization, Other)
  Sender: FDA-Public Use
  Company Number: US-ABBOTT-11P-163-0878933-00

PATIENT
  Sex: Male

DRUGS (5)
  1. UNKNOWN ANTIPSYCHOTIC MEDICATION [Concomitant]
     Indication: PRODUCT USED FOR UNKNOWN INDICATION
     Dates: start: 20111118
  2. UNKNOWN BLOOD PRESSURE MEDICATION [Concomitant]
     Indication: HYPERTENSION
  3. ANDROGEL [Suspect]
     Indication: BLOOD TESTOSTERONE DECREASED
     Route: 061
  4. UNKNOWN  DIABETES MEDICATION [Concomitant]
     Indication: DIABETES MELLITUS
  5. ANDROGEL [Suspect]
     Route: 061

REACTIONS (8)
  - PITUITARY TUMOUR [None]
  - WEIGHT DECREASED [None]
  - MONOPARESIS [None]
  - CEREBROVASCULAR ACCIDENT [None]
  - FALL [None]
  - GAIT DISTURBANCE [None]
  - BLOOD POTASSIUM DECREASED [None]
  - FATIGUE [None]
